FAERS Safety Report 10266779 (Version 1)
Quarter: 2014Q2

REPORT INFORMATION
  Report Type: Spontaneous
  Country: US (occurrence: US)
  Receive Date: 20140630
  Receipt Date: 20140630
  Transmission Date: 20141212
  Serious: No
  Sender: FDA-Public Use
  Company Number: US-US-EMD SERONO, INC.-7300570

PATIENT
  Sex: Male

DRUGS (2)
  1. SEROSTIM [(SOMATROPIN (RDNA ORIGIN) FOR INJECTION)] [Suspect]
     Indication: PRODUCT USED FOR UNKNOWN INDICATION
  2. TESTOSTERONE [Concomitant]
     Indication: PRODUCT USED FOR UNKNOWN INDICATION

REACTIONS (1)
  - Liver function test abnormal [Unknown]
